FAERS Safety Report 24273137 (Version 1)
Quarter: 2024Q3

REPORT INFORMATION
  Report Type: Spontaneous
  Country: NL (occurrence: NL)
  Receive Date: 20240902
  Receipt Date: 20240902
  Transmission Date: 20241016
  Serious: Yes (Other)
  Sender: TEVA
  Company Number: None

PATIENT
  Age: 69 Year
  Sex: Male
  Weight: 90 kg

DRUGS (5)
  1. TAMSULOSIN [Suspect]
     Active Substance: TAMSULOSIN
     Indication: Benign prostatic hyperplasia
     Dosage: 1 X PER DAY;? BRAND NAME NOT SPECIFIED
     Route: 065
     Dates: start: 20160601
  2. GLICLAZIDE [Suspect]
     Active Substance: GLICLAZIDE
     Indication: Blood glucose increased
     Dosage: 1 X PER DAY 1 TABLET,?GLICLAZIDE MYLAN RETARD
     Route: 065
     Dates: start: 20230501
  3. LOSARTAN [Suspect]
     Active Substance: LOSARTAN\LOSARTAN POTASSIUM
     Indication: Hypertension
     Dosage: 1 X PER DAY,??BRAND NAME NOT SPECIFIED
     Route: 065
     Dates: start: 20230601
  4. METFORMIN [Suspect]
     Active Substance: METFORMIN HYDROCHLORIDE
     Indication: Type 2 diabetes mellitus
     Dosage: 2 X PER DAY,?METFORMIN TABLET 500MG / BRAND NAME NOT SPECIFIED
     Route: 065
     Dates: start: 20200101
  5. METOPROLOL [Suspect]
     Active Substance: METOPROLOL
     Indication: Hypertension
     Dosage: (SUCCINATE) / BRAND NAME NOT SPECIFIED
     Route: 065
     Dates: start: 20230601

REACTIONS (3)
  - Swollen tongue [Not Recovered/Not Resolved]
  - Mouth swelling [Not Recovered/Not Resolved]
  - Swelling face [Not Recovered/Not Resolved]
